FAERS Safety Report 18874826 (Version 2)
Quarter: 2021Q3

REPORT INFORMATION
  Report Type: Spontaneous
  Country: US (occurrence: US)
  Receive Date: 20210210
  Receipt Date: 20210930
  Transmission Date: 20211014
  Serious: Yes (Other)
  Sender: FDA-Public Use
  Company Number: US-ASTRAZENECA-2021A027387

PATIENT
  Age: 44 Year
  Sex: Female

DRUGS (58)
  1. PRILOSEC OTC [Suspect]
     Active Substance: OMEPRAZOLE MAGNESIUM
     Indication: GASTROOESOPHAGEAL REFLUX DISEASE
     Route: 048
     Dates: start: 2003, end: 2017
  2. PREVACID 24 HR [Suspect]
     Active Substance: LANSOPRAZOLE
     Indication: GASTROOESOPHAGEAL REFLUX DISEASE
     Route: 065
     Dates: start: 2008, end: 2017
  3. NAPROXEN. [Concomitant]
     Active Substance: NAPROXEN
     Indication: PAIN
  4. TRAMADOL. [Concomitant]
     Active Substance: TRAMADOL
     Indication: PAIN
  5. CLINDAMYCIN. [Concomitant]
     Active Substance: CLINDAMYCIN
  6. REQUIP [Concomitant]
     Active Substance: ROPINIROLE HYDROCHLORIDE
  7. FERROUS SULFATE. [Concomitant]
     Active Substance: FERROUS SULFATE
  8. ENOXAPARIN [Concomitant]
     Active Substance: ENOXAPARIN
  9. MORPHINE [Concomitant]
     Active Substance: MORPHINE
  10. PRILOSEC [Suspect]
     Active Substance: OMEPRAZOLE MAGNESIUM
     Indication: GASTROOESOPHAGEAL REFLUX DISEASE
     Dosage: 20.0MG UNKNOWN
     Route: 048
     Dates: start: 1999, end: 2017
  11. ADVIL [Concomitant]
     Active Substance: IBUPROFEN
  12. CARAFATE [Concomitant]
     Active Substance: SUCRALFATE
  13. HYDROCODONE/PARACETAMOL [Concomitant]
     Active Substance: ACETAMINOPHEN\HYDROCODONE BITARTRATE
  14. WOOL FAT/PROPOLIS/PARAFFIN, LIQUID/EUCALYPTUS GLOBULUS/HELIANTHUS ANNUUS/SALVIA OFFICINALIS/ABIES AL [Concomitant]
  15. WARFARIN [Concomitant]
     Active Substance: WARFARIN
  16. AMITRIPTYLINE [Concomitant]
     Active Substance: AMITRIPTYLINE
  17. LOPERAMIDE [Concomitant]
     Active Substance: LOPERAMIDE
  18. ORPHENADRINE/ACETYLSALICYLIC ACID [Concomitant]
  19. METHYLPREDNISOLONE. [Concomitant]
     Active Substance: METHYLPREDNISOLONE
  20. NEXIUM [Suspect]
     Active Substance: ESOMEPRAZOLE MAGNESIUM
     Indication: GASTROOESOPHAGEAL REFLUX DISEASE
     Route: 048
     Dates: start: 2008, end: 2017
  21. PREVACID [Suspect]
     Active Substance: LANSOPRAZOLE
     Indication: GASTROOESOPHAGEAL REFLUX DISEASE
     Route: 065
     Dates: start: 2008, end: 2017
  22. PREVACID 24 HR [Suspect]
     Active Substance: LANSOPRAZOLE
     Indication: GASTROOESOPHAGEAL REFLUX DISEASE
     Route: 065
     Dates: start: 2009, end: 2017
  23. PROTONIX [Suspect]
     Active Substance: PANTOPRAZOLE SODIUM
     Indication: GASTROOESOPHAGEAL REFLUX DISEASE
     Dosage: 40.0MG UNKNOWN
     Route: 065
     Dates: start: 2001
  24. FENTANYL. [Concomitant]
     Active Substance: FENTANYL
  25. FLAGYL [Concomitant]
     Active Substance: METRONIDAZOLE\METRONIDAZOLE HYDROCHLORIDE
  26. METOCLOPRAMIDE. [Concomitant]
     Active Substance: METOCLOPRAMIDE
  27. TOPAMAX [Concomitant]
     Active Substance: TOPIRAMATE
  28. CEFPODOXIME/AZITHROMYCIN [Concomitant]
  29. LIDODERM [Concomitant]
     Active Substance: LIDOCAINE
  30. AZITHROMYCIN ANHYDROUS. [Concomitant]
     Active Substance: AZITHROMYCIN ANHYDROUS
     Indication: INFECTION
  31. VERSED [Concomitant]
     Active Substance: MIDAZOLAM HYDROCHLORIDE
  32. WELCHOL [Concomitant]
     Active Substance: COLESEVELAM HYDROCHLORIDE
  33. CYCLOBENZAPRINE. [Concomitant]
     Active Substance: CYCLOBENZAPRINE
  34. TEMAZEPAM. [Concomitant]
     Active Substance: TEMAZEPAM
  35. DIAZEPAM. [Concomitant]
     Active Substance: DIAZEPAM
  36. OXYCODONE AND ACETAMINOPHEN [Concomitant]
     Active Substance: ACETAMINOPHEN\OXYCODONE HYDROCHLORIDE
  37. ESTRADIOL. [Concomitant]
     Active Substance: ESTRADIOL
  38. NEXIUM 24HR [Suspect]
     Active Substance: ESOMEPRAZOLE MAGNESIUM
     Indication: GASTROOESOPHAGEAL REFLUX DISEASE
     Route: 048
     Dates: start: 2008, end: 2017
  39. NEXIUM 24HR [Suspect]
     Active Substance: ESOMEPRAZOLE MAGNESIUM
     Indication: GASTROOESOPHAGEAL REFLUX DISEASE
     Route: 048
     Dates: start: 2014, end: 2017
  40. PROMETHAZINE [Concomitant]
     Active Substance: PROMETHAZINE HYDROCHLORIDE
  41. HYOSCYAMINE. [Concomitant]
     Active Substance: HYOSCYAMINE
  42. CEPHALEXIN. [Concomitant]
     Active Substance: CEPHALEXIN
  43. PARMIPEXOLE [Concomitant]
  44. DOXYCYCLINE HYCLATE. [Concomitant]
     Active Substance: DOXYCYCLINE HYCLATE
  45. NITROFURANTOIN. [Concomitant]
     Active Substance: NITROFURANTOIN
  46. PRILOSEC [Suspect]
     Active Substance: OMEPRAZOLE MAGNESIUM
     Indication: GASTROOESOPHAGEAL REFLUX DISEASE
     Dosage: GENERIC20.0MG UNKNOWN
     Route: 065
  47. CELEBREX [Concomitant]
     Active Substance: CELECOXIB
     Indication: PAIN
  48. VANCOMYCIN [Concomitant]
     Active Substance: VANCOMYCIN
  49. HYDROMORPHONE [Concomitant]
     Active Substance: HYDROMORPHONE
  50. ELIQUIS [Concomitant]
     Active Substance: APIXABAN
  51. NEXIUM [Suspect]
     Active Substance: ESOMEPRAZOLE MAGNESIUM
     Indication: GASTROOESOPHAGEAL REFLUX DISEASE
     Dosage: 20.0MG UNKNOWN
     Route: 048
     Dates: start: 2001, end: 2017
  52. PRILOSEC OTC [Suspect]
     Active Substance: OMEPRAZOLE MAGNESIUM
     Indication: GASTROOESOPHAGEAL REFLUX DISEASE
     Route: 048
     Dates: start: 2008, end: 2017
  53. GABAPENTIN. [Concomitant]
     Active Substance: GABAPENTIN
  54. BENZONATATE. [Concomitant]
     Active Substance: BENZONATATE
  55. PRILOSEC [Suspect]
     Active Substance: OMEPRAZOLE MAGNESIUM
     Indication: GASTROOESOPHAGEAL REFLUX DISEASE
     Route: 048
     Dates: start: 2008, end: 2017
  56. PREVACID [Suspect]
     Active Substance: LANSOPRAZOLE
     Indication: GASTROOESOPHAGEAL REFLUX DISEASE
     Dosage: 20.0MG UNKNOWN
     Route: 065
     Dates: start: 1995, end: 2017
  57. CIPROFLOXACIN. [Concomitant]
     Active Substance: CIPROFLOXACIN
  58. SKELAXIN [Concomitant]
     Active Substance: METAXALONE

REACTIONS (7)
  - Chronic kidney disease-mineral and bone disorder [Unknown]
  - Acute kidney injury [Unknown]
  - Renal vein thrombosis [Unknown]
  - Chronic kidney disease [Not Recovered/Not Resolved]
  - Renal disorder [Unknown]
  - Glomerulonephritis [Unknown]
  - Gastrooesophageal reflux disease [Not Recovered/Not Resolved]

NARRATIVE: CASE EVENT DATE: 2013
